FAERS Safety Report 10816879 (Version 1)
Quarter: 2015Q1

REPORT INFORMATION
  Report Type: Spontaneous
  Country: US (occurrence: US)
  Receive Date: 20150218
  Receipt Date: 20150218
  Transmission Date: 20150721
  Serious: Yes (Death, Hospitalization, Other)
  Sender: FDA-Public Use
  Company Number: US-PFIZER INC-2015063057

PATIENT
  Age: 39 Year
  Sex: Female
  Weight: 50 kg

DRUGS (1)
  1. VFEND [Suspect]
     Active Substance: VORICONAZOLE

REACTIONS (3)
  - Death [Fatal]
  - Gastroenteritis viral [Unknown]
  - Multi-organ failure [Unknown]

NARRATIVE: CASE EVENT DATE: 20150209
